FAERS Safety Report 5281527-X (Version None)
Quarter: 2007Q1

REPORT INFORMATION
  Report Type: 
  Country: None (occurrence: None)
  Receive Date: 20070330
  Receipt Date: 20070319
  Transmission Date: 20070707
  Serious: Yes (Hospitalization)
  Sender: FDA-Public Use
  Company Number: DE-NOVOPROD-260311

PATIENT
  Sex: Female
  Weight: 59.2 kg

DRUGS (1)
  1. LEVEMIR [Suspect]
     Indication: DIABETES MELLITUS INSULIN-DEPENDENT
     Dosage: 40 U, QD
     Route: 058
     Dates: start: 20060301, end: 20070101

REACTIONS (2)
  - BLISTER [None]
  - ERYTHEMA [None]
